FAERS Safety Report 14529899 (Version 2)
Quarter: 2018Q3

REPORT INFORMATION
  Report Type: Spontaneous
  Country: US (occurrence: US)
  Receive Date: 20180214
  Receipt Date: 20180920
  Transmission Date: 20181010
  Serious: No
  Sender: FDA-Public Use
  Company Number: US-IGSA-GTI005254

PATIENT
  Age: 68 Year
  Sex: Male
  Weight: 87 kg

DRUGS (8)
  1. PROLASTIN?C [Suspect]
     Active Substance: .ALPHA.1-PROTEINASE INHIBITOR HUMAN
     Indication: ALPHA-1 ANTI-TRYPSIN DEFICIENCY
     Dosage: 5220 MG, Q.WK.
     Route: 042
     Dates: start: 20170313, end: 20170313
  2. ASPIRIN. [Concomitant]
     Active Substance: ASPIRIN
     Dosage: UNK
  3. XOPENEX [Concomitant]
     Active Substance: LEVALBUTEROL HYDROCHLORIDE
     Dosage: UNK
  4. GLYBURIDE. [Concomitant]
     Active Substance: GLYBURIDE
     Dosage: UNK
  5. XARELTO [Concomitant]
     Active Substance: RIVAROXABAN
     Dosage: UNK
  6. XOLAIR [Concomitant]
     Active Substance: OMALIZUMAB
     Dosage: UNK
  7. METFORMIN [Concomitant]
     Active Substance: METFORMIN HYDROCHLORIDE
     Dosage: UNK
  8. LUNESTA [Concomitant]
     Active Substance: ESZOPICLONE
     Dosage: UNK

REACTIONS (4)
  - Abdominal pain upper [Unknown]
  - Nausea [Unknown]
  - Headache [Recovered/Resolved]
  - Feeling abnormal [Unknown]

NARRATIVE: CASE EVENT DATE: 20170313
